FAERS Safety Report 6108396-X (Version None)
Quarter: 2009Q1

REPORT INFORMATION
  Report Type: 
  Country: None (occurrence: None)
  Receive Date: 20090309
  Receipt Date: 20090227
  Transmission Date: 20090719
  Serious: Yes (Other)
  Sender: FDA-Public Use
  Company Number: PHHY2009BR07569

PATIENT
  Sex: Female

DRUGS (2)
  1. FORASEQ [Suspect]
     Dosage: 12/200MCG
  2. FORASEQ [Suspect]
     Dosage: 1 CAPSULE
     Route: 048

REACTIONS (4)
  - ANKLE FRACTURE [None]
  - FALL [None]
  - INCORRECT ROUTE OF DRUG ADMINISTRATION [None]
  - PHARYNGITIS [None]
